FAERS Safety Report 9858329 (Version 1)
Quarter: 2014Q1

REPORT INFORMATION
  Report Type: Spontaneous
  Country: BR (occurrence: BR)
  Receive Date: 20140131
  Receipt Date: 20140131
  Transmission Date: 20141002
  Serious: Yes (Other)
  Sender: FDA-Public Use
  Company Number: BR-VERTEX PHARMACEUTICALS INC-2014-000476

PATIENT
  Age: 61 Year
  Sex: Male
  Weight: 80 kg

DRUGS (8)
  1. INCIVO [Suspect]
     Indication: HEPATITIS C
     Dosage: 2 DF, TID
     Route: 065
     Dates: start: 20140122
  2. INTERFERON [Suspect]
     Indication: PRODUCT USED FOR UNKNOWN INDICATION
     Dosage: DOSAGE FORM: UNKNOWN
     Route: 065
  3. RIBAVIRIN [Concomitant]
     Dosage: DOSAGE FORM: UNKNOWN
     Route: 065
  4. DIOSMIN [Concomitant]
     Indication: VEIN DISORDER
     Dosage: DOSAGE FORM: UNKNOWN
     Route: 065
     Dates: start: 2013
  5. VITAMIN B [Concomitant]
     Dosage: DOSAGE FORM: UNKNOWN
     Route: 065
  6. LYRICA [Concomitant]
     Indication: VEIN DISORDER
     Dosage: DOSAGE FORM: UNKNOWN
     Route: 065
     Dates: start: 2009
  7. TECTA [Concomitant]
     Indication: HIATUS HERNIA
     Dosage: DOSAGE FORM: UNKNOWN
     Route: 065
     Dates: start: 2009
  8. EUTHYROX [Concomitant]
     Indication: THYROID DISORDER
     Dosage: DOSAGE FORM: UNKNOWN
     Route: 065
     Dates: start: 2009

REACTIONS (5)
  - Dengue fever [Not Recovered/Not Resolved]
  - Decreased appetite [Not Recovered/Not Resolved]
  - Headache [Not Recovered/Not Resolved]
  - Diarrhoea [Not Recovered/Not Resolved]
  - Nausea [Not Recovered/Not Resolved]
